FAERS Safety Report 20214094 (Version 1)
Quarter: 2021Q4

REPORT INFORMATION
  Report Type: Spontaneous
  Country: US (occurrence: None)
  Receive Date: 20211221
  Receipt Date: 20211221
  Transmission Date: 20220303
  Serious: Yes (Other)
  Sender: FDA-Public Use
  Company Number: 2021A891172

PATIENT
  Age: 16927 Day
  Sex: Female
  Weight: 68 kg

DRUGS (45)
  1. PRILOSEC [Suspect]
     Active Substance: OMEPRAZOLE MAGNESIUM
     Indication: Gastrooesophageal reflux disease
     Route: 048
     Dates: start: 2010
  2. PRILOSEC [Suspect]
     Active Substance: OMEPRAZOLE MAGNESIUM
     Indication: Gastrooesophageal reflux disease
     Dosage: GENERIC
     Route: 065
     Dates: start: 2011
  3. PRILOSEC OTC [Suspect]
     Active Substance: OMEPRAZOLE MAGNESIUM
     Indication: Gastrooesophageal reflux disease
     Route: 048
     Dates: start: 2010, end: 2011
  4. LISINOPRIL [Concomitant]
     Active Substance: LISINOPRIL
     Indication: Hypertension
  5. TRAMADOL [Concomitant]
     Active Substance: TRAMADOL
     Indication: Pain
  6. AMOXICILLIN [Concomitant]
     Active Substance: AMOXICILLIN
     Indication: Infection
  7. HYDROCHLOROTHIAZIDE [Concomitant]
     Active Substance: HYDROCHLOROTHIAZIDE
     Indication: Hypertension
  8. MELOXICAM [Concomitant]
     Active Substance: MELOXICAM
     Indication: Arthritis
  9. IBUPROFEN [Concomitant]
     Active Substance: IBUPROFEN
     Indication: Pain
  10. BENADRYL [Concomitant]
     Active Substance: DIPHENHYDRAMINE HYDROCHLORIDE
     Indication: Multiple allergies
  11. CANNABIDIOL\HERBALS [Concomitant]
     Active Substance: CANNABIDIOL\HERBALS
     Indication: Pain
  12. VITAMIN D2 [Concomitant]
     Active Substance: ERGOCALCIFEROL
     Indication: Vitamin D deficiency
  13. TAGAMET [Concomitant]
     Active Substance: CIMETIDINE
  14. ZANTAC [Concomitant]
     Active Substance: RANITIDINE HYDROCHLORIDE
  15. TUMS [Concomitant]
     Active Substance: CALCIUM CARBONATE
  16. ROLAIDS [Concomitant]
     Active Substance: CALCIUM CARBONATE\MAGNESIUM HYDROXIDE
  17. ERYTHROMYCIN [Concomitant]
     Active Substance: ERYTHROMYCIN
  18. SEROQUEL [Concomitant]
     Active Substance: QUETIAPINE FUMARATE
  19. WELLBUTRIN [Concomitant]
     Active Substance: BUPROPION HYDROCHLORIDE
  20. POTASSIUM CHLORIDE [Concomitant]
     Active Substance: POTASSIUM CHLORIDE
  21. PERCOCET [Concomitant]
     Active Substance: ACETAMINOPHEN\OXYCODONE HYDROCHLORIDE
  22. CALCIUM [Concomitant]
     Active Substance: CALCIUM
  23. ADVAIR DISKUS [Concomitant]
     Active Substance: FLUTICASONE PROPIONATE\SALMETEROL XINAFOATE
  24. SPIRIVA [Concomitant]
     Active Substance: TIOTROPIUM BROMIDE MONOHYDRATE
  25. FELDENE [Concomitant]
     Active Substance: PIROXICAM
  26. ZANAFLEX [Concomitant]
     Active Substance: TIZANIDINE HYDROCHLORIDE
  27. LAMICTAL [Concomitant]
     Active Substance: LAMOTRIGINE
  28. PHENERGAN [Concomitant]
     Active Substance: PROMETHAZINE HYDROCHLORIDE
  29. NICODERM CQ [Concomitant]
     Active Substance: NICOTINE
  30. XANAX [Concomitant]
     Active Substance: ALPRAZOLAM
  31. HALDOL [Concomitant]
     Active Substance: HALOPERIDOL
  32. EFFEXOR [Concomitant]
     Active Substance: VENLAFAXINE HYDROCHLORIDE
  33. ANUSOL NOS [Concomitant]
     Active Substance: BALSAM PERU\BENZYL BENZOATE\BISMUTH HYDROXIDE\BISMUTH SUBGALLATE\HYDROCORTISONE ACETATE\ZINC OXIDE
  34. CATAPRES [Concomitant]
     Active Substance: CLONIDINE HYDROCHLORIDE
  35. REMERON [Concomitant]
     Active Substance: MIRTAZAPINE
  36. DOCUSATE SODIUM [Concomitant]
     Active Substance: DOCUSATE SODIUM
  37. ATIVAN [Concomitant]
     Active Substance: LORAZEPAM
  38. SODIUM CHLORIDE [Concomitant]
     Active Substance: SODIUM CHLORIDE
  39. VIBRAMYCIN [Concomitant]
     Active Substance: DOXYCYCLINE
  40. NARCAN [Concomitant]
     Active Substance: NALOXONE HYDROCHLORIDE
  41. LOVENOX [Concomitant]
     Active Substance: ENOXAPARIN SODIUM
  42. ZOFRAN [Concomitant]
     Active Substance: ONDANSETRON HYDROCHLORIDE
  43. FENTANYL [Concomitant]
     Active Substance: FENTANYL
  44. BACLOFEN [Concomitant]
     Active Substance: BACLOFEN
  45. HYDROXYZINE HYDROCHLORIDE [Concomitant]
     Active Substance: HYDROXYZINE HYDROCHLORIDE

REACTIONS (3)
  - Chronic kidney disease [Not Recovered/Not Resolved]
  - Acute kidney injury [Not Recovered/Not Resolved]
  - Chronic kidney disease-mineral and bone disorder [Unknown]

NARRATIVE: CASE EVENT DATE: 20100224
